FAERS Safety Report 21716034 (Version 1)
Quarter: 2022Q4

REPORT INFORMATION
  Report Type: Spontaneous
  Country: US (occurrence: None)
  Receive Date: 20221209
  Receipt Date: 20221209
  Transmission Date: 20230112
  Serious: No
  Sender: FDA-Public Use
  Company Number: None

PATIENT
  Sex: Female

DRUGS (2)
  1. COSENTYX [Suspect]
     Active Substance: SECUKINUMAB
     Indication: Psoriasis
     Dosage: FREQUENCY : MONTHLY;?
     Route: 011
     Dates: start: 20220907
  2. PRALUENT [Suspect]
     Active Substance: ALIROCUMAB

REACTIONS (2)
  - Psoriasis [None]
  - Rash pruritic [None]
